FAERS Safety Report 5821990-6 (Version None)
Quarter: 2008Q3

REPORT INFORMATION
  Report Type: 
  Country: None (occurrence: None)
  Receive Date: 20080724
  Receipt Date: 20080711
  Transmission Date: 20090109
  Serious: Yes (Other)
  Sender: FDA-Public Use
  Company Number: US-MERCK-0807USA02979

PATIENT
  Age: 31 Year
  Sex: Female

DRUGS (6)
  1. SINGULAIR [Suspect]
     Route: 048
  2. ALBUTEROL SULFATE [Suspect]
  3. [THERAPY UNSPECIFIED] [Concomitant]
     Route: 065
  4. EPINEPHRINE [Suspect]
     Route: 058
  5. IPRATROPIUM BROMIDE [Suspect]
  6. METHYLPREDNISOLONE [Suspect]
     Route: 042

REACTIONS (7)
  - ADVERSE EVENT [None]
  - ASTHMA [None]
  - DRUG EXPOSURE DURING PREGNANCY [None]
  - HYPERCAPNIA [None]
  - RESPIRATORY DISTRESS [None]
  - RESPIRATORY FAILURE [None]
  - STATUS ASTHMATICUS [None]
